FAERS Safety Report 24440960 (Version 2)
Quarter: 2024Q4

REPORT INFORMATION
  Report Type: Report from Study
  Country: US (occurrence: US)
  Receive Date: 20241016
  Receipt Date: 20241017
  Transmission Date: 20250115
  Serious: No
  Sender: ROCHE
  Company Number: US-ROCHE-3468383

PATIENT
  Age: 42 Year
  Sex: Male

DRUGS (2)
  1. HEMLIBRA [Suspect]
     Active Substance: EMICIZUMAB-KXWH
     Indication: Haemophilia
     Dosage: INJECT 285MG (1.9ML FROM 1-150MG + 3-60MG VIALS) SUBCUTANEOUSLY EVERY 2 WEEK(S)
     Route: 058
  2. HEMLIBRA [Suspect]
     Active Substance: EMICIZUMAB-KXWH
     Indication: Factor VIII deficiency
     Dosage: INJECT 285MG (1.9ML FROM 1-150MG + 3-60MG VIALS)
     Route: 058

REACTIONS (1)
  - Contusion [Unknown]
